FAERS Safety Report 9859235 (Version 1)
Quarter: 2014Q1

REPORT INFORMATION
  Report Type: Spontaneous
  Country: IT (occurrence: IT)
  Receive Date: 20140131
  Receipt Date: 20140131
  Transmission Date: 20141002
  Serious: Yes (Other)
  Sender: FDA-Public Use
  Company Number: IT-BRISTOL-MYERS SQUIBB COMPANY-20090999

PATIENT
  Age: 37 Year
  Sex: Female

DRUGS (4)
  1. ABILIFY TABS 15 MG [Suspect]
     Indication: DRUG ABUSE
     Route: 048
     Dates: start: 20131005, end: 20131005
  2. EFFEXOR [Suspect]
     Indication: DRUG ABUSE
     Route: 048
     Dates: start: 20131005, end: 20131005
  3. DEPAKIN [Suspect]
     Indication: DRUG ABUSE
     Route: 048
     Dates: start: 20131005, end: 20131005
  4. LARGACTIL [Suspect]
     Indication: DRUG ABUSE
     Dosage: FORMULATION TABS 25MG
     Route: 048
     Dates: start: 20131005, end: 20131005

REACTIONS (4)
  - Drug abuse [Recovering/Resolving]
  - Agitation [Recovering/Resolving]
  - Toxicity to various agents [Recovering/Resolving]
  - Abdominal pain upper [Recovering/Resolving]
